FAERS Safety Report 13258652 (Version 1)
Quarter: 2017Q1

REPORT INFORMATION
  Report Type: Report from Study
  Country: IT (occurrence: IT)
  Receive Date: 20170222
  Receipt Date: 20170222
  Transmission Date: 20170428
  Serious: Yes (Death)
  Sender: FDA-Public Use
  Company Number: IT-ACCORD-048433

PATIENT

DRUGS (7)
  1. CISPLATIN. [Suspect]
     Active Substance: CISPLATIN
     Indication: SMALL CELL LUNG CANCER
     Dosage: INFUSED IN 30 MINUTE, ON DAYS 1 TO 4?EVERY 3 WEEK FOR 4-6 CYCLES
     Route: 042
  2. GLUCOSE [Concomitant]
     Active Substance: DEXTROSE
     Dosage: STRENGTH: 5%
     Route: 042
  3. ETOPOSIDE. [Suspect]
     Active Substance: ETOPOSIDE
     Indication: SMALL CELL LUNG CANCER
     Dosage: INFUSED IN 60 MINUTE, ON DAYS 1 TO 4. EVERY 3 WEEK FOR 4-6 CYCLES
     Route: 042
  4. SODIUM CHLORIDE. [Concomitant]
     Active Substance: SODIUM CHLORIDE
     Dosage: STRENGTH: 9%?OVER 2 HOURS
  5. IFOSFAMIDE. [Suspect]
     Active Substance: IFOSFAMIDE
     Indication: SMALL CELL LUNG CANCER
     Dosage: INFUSED IN 60 MINUTE, ON DAYS 1 TO 4. EVERY 3 WEEK FOR 4-6 CYCLES
     Route: 042
  6. MANNITOL. [Concomitant]
     Active Substance: MANNITOL
  7. MESNA. [Concomitant]
     Active Substance: MESNA
     Dosage: TOTAL?BEFORE THE FIRST DOSE OF IFOSFAMIDE AND THEN AFTER 4 AND 8 HOURS AT THE SAME DOSE.
     Route: 040

REACTIONS (1)
  - Cardiac failure [Fatal]
